FAERS Safety Report 15318996 (Version 1)
Quarter: 2018Q3

REPORT INFORMATION
  Report Type: Spontaneous
  Country: US (occurrence: US)
  Receive Date: 20180820
  Receipt Date: 20180820
  Transmission Date: 20181010
  Serious: Yes (Life-Threatening)
  Sender: FDA-Public Use
  Company Number: None

PATIENT
  Age: 67 Year
  Sex: Female
  Weight: 68.4 kg

DRUGS (1)
  1. AMLODIPINE? VALSARTAN 10 ? 160MG TABS [Suspect]
     Active Substance: AMLODIPINE\VALSARTAN
     Indication: PRODUCT USED FOR UNKNOWN INDICATION
     Dosage: ?          QUANTITY:30 TABLET(S);?
     Route: 048
     Dates: start: 20150516, end: 20180815

REACTIONS (2)
  - Heart rate abnormal [None]
  - Wrong technique in product usage process [None]

NARRATIVE: CASE EVENT DATE: 20170810
